FAERS Safety Report 13021722 (Version 1)
Quarter: 2016Q4

REPORT INFORMATION
  Report Type: Spontaneous
  Country: CO (occurrence: CO)
  Receive Date: 20161213
  Receipt Date: 20161213
  Transmission Date: 20170207
  Serious: Yes (Death)
  Sender: FDA-Public Use
  Company Number: CO-ROCHE-1865837

PATIENT
  Age: 70 Year
  Sex: Female

DRUGS (9)
  1. TIROXINA [Concomitant]
     Active Substance: LEVOTHYROXINE SODIUM
  2. ATORVASTATINA [Concomitant]
     Active Substance: ATORVASTATIN
  3. METALYSE [Suspect]
     Active Substance: TENECTEPLASE
     Indication: ACUTE MYOCARDIAL INFARCTION
     Route: 065
     Dates: start: 20161001
  4. ASA [Concomitant]
     Active Substance: ASPIRIN
  5. NITROGLYCERINE [Concomitant]
     Active Substance: NITROGLYCERIN
     Dosage: STRENGTH: 0.5
     Route: 065
  6. LOSARTAN. [Concomitant]
     Active Substance: LOSARTAN
  7. MORFINA [Concomitant]
     Active Substance: MORPHINE HYDROCHLORIDE
  8. CLOPIDOGREL [Concomitant]
     Active Substance: CLOPIDOGREL BISULFATE
  9. ENOXAPARINA [Concomitant]
     Active Substance: ENOXAPARIN

REACTIONS (2)
  - Cardiogenic shock [Fatal]
  - Drug ineffective [Fatal]
